FAERS Safety Report 26063617 (Version 1)
Quarter: 2025Q4

REPORT INFORMATION
  Report Type: Report from Study
  Country: US (occurrence: US)
  Receive Date: 20251119
  Receipt Date: 20251119
  Transmission Date: 20260117
  Serious: Yes (Hospitalization)
  Sender: ALEXION PHARMACEUTICALS
  Company Number: US-AstraZeneca-CH-00991939A

PATIENT
  Sex: Male
  Weight: 69 kg

DRUGS (14)
  1. SELUMETINIB [Suspect]
     Active Substance: SELUMETINIB
     Indication: Neurofibromatosis
     Dosage: 45 MILLIGRAM, BID
     Dates: start: 20250926
  2. SELUMETINIB [Suspect]
     Active Substance: SELUMETINIB
     Dosage: 20 MILLIGRAM, BID
  3. SELUMETINIB [Suspect]
     Active Substance: SELUMETINIB
     Dosage: 10 MILLIGRAM
  4. SELUMETINIB [Suspect]
     Active Substance: SELUMETINIB
     Dosage: 25 MILLIGRAM
  5. STRATTERA [Suspect]
     Active Substance: ATOMOXETINE HYDROCHLORIDE
     Dosage: UNK
     Route: 065
  6. DEPAKOTE [Suspect]
     Active Substance: DIVALPROEX SODIUM
     Dosage: UNK
     Route: 065
  7. MAGNESIUM [Concomitant]
     Active Substance: MAGNESIUM
     Dosage: UNK
     Route: 065
  8. IBUPROFEN [Concomitant]
     Active Substance: IBUPROFEN
     Route: 065
  9. ONDANSETRON [Concomitant]
     Active Substance: ONDANSETRON
     Dosage: UNK
     Route: 065
  10. TYLENOL [Concomitant]
     Active Substance: ACETAMINOPHEN
     Dosage: UNK
     Route: 065
  11. CETIRIZINE [Concomitant]
     Active Substance: CETIRIZINE HYDROCHLORIDE
     Dosage: UNK
     Route: 065
  12. ARIPIPRAZOLE [Concomitant]
     Active Substance: ARIPIPRAZOLE
     Dosage: UNK
     Route: 065
  13. CLONIDINE [Concomitant]
     Active Substance: CLONIDINE
     Dosage: UNK
     Route: 065
  14. METHYLPHENIDATE [Concomitant]
     Active Substance: METHYLPHENIDATE
     Dosage: UNK
     Route: 065

REACTIONS (2)
  - Hyperammonaemia [Unknown]
  - Erythema [Unknown]
